FAERS Safety Report 4898390-9 (Version None)
Quarter: 2006Q1

REPORT INFORMATION
  Report Type: 
  Country: None (occurrence: None)
  Receive Date: 20060131
  Receipt Date: 20060131
  Transmission Date: 20060701
  Serious: Yes (Hospitalization)
  Sender: FDA-Public Use
  Company Number: None

PATIENT
  Age: 71 Year
  Sex: Male

DRUGS (10)
  1. ENOXAPARIN SODIUM [Suspect]
     Indication: ATRIAL FIBRILLATION
     Dosage: 60 MG BID SUBQ
     Route: 058
  2. GATIFLOXACIN [Suspect]
     Indication: PNEUMONIA
     Dosage: 400 MG Q24 H PO
     Route: 048
  3. LISINOPRIL [Suspect]
  4. WARFARIN [Concomitant]
  5. DIGOXIN [Concomitant]
  6. DILTIAZEM HCL [Concomitant]
  7. ALBUTEROL [Concomitant]
  8. GLYBURIDE [Concomitant]
  9. OMEPRAZOLE [Concomitant]
  10. ALLOPURINOL [Concomitant]

REACTIONS (3)
  - ABDOMINAL HAEMATOMA [None]
  - EOSINOPHILIA [None]
  - RASH [None]
